FAERS Safety Report 25519668 (Version 1)
Quarter: 2025Q3

REPORT INFORMATION
  Report Type: Report from Study
  Country: CA (occurrence: CA)
  Receive Date: 20250704
  Receipt Date: 20250704
  Transmission Date: 20251021
  Serious: Yes (Other)
  Sender: ABBVIE
  Company Number: CA-ABBVIE-6314673

PATIENT
  Age: 56 Year
  Sex: Female

DRUGS (7)
  1. SKYRIZI [Suspect]
     Active Substance: RISANKIZUMAB-RZAA
     Indication: Colitis ulcerative
     Dosage: FIRST AND LAST ADMIN DATTE WAS 2025
     Route: 058
  2. SKYRIZI [Suspect]
     Active Substance: RISANKIZUMAB-RZAA
     Dosage: FIRST ADMIN DATE WAS 2025
     Route: 058
  3. SKYRIZI [Suspect]
     Active Substance: RISANKIZUMAB-RZAA
     Indication: Colitis ulcerative
     Dosage: FORM STRENGTH 600MG/10ML (3 INFUSIONS)?LAT ADMIN DATE 2025
     Route: 042
     Dates: start: 20250328
  4. SKYRIZI [Suspect]
     Active Substance: RISANKIZUMAB-RZAA
     Indication: Colitis ulcerative
     Route: 042
     Dates: start: 20250523, end: 20250523
  5. PREDNISONE [Concomitant]
     Active Substance: PREDNISONE
     Indication: Product used for unknown indication
     Dates: start: 20250624
  6. PREDNISONE [Concomitant]
     Active Substance: PREDNISONE
     Indication: Product used for unknown indication
     Dates: start: 20250625
  7. PREDNISONE [Concomitant]
     Active Substance: PREDNISONE
     Indication: Product used for unknown indication
     Dates: start: 20250626

REACTIONS (12)
  - Deafness [Unknown]
  - Pruritus [Unknown]
  - Alopecia [Unknown]
  - Nasopharyngitis [Unknown]
  - Pyrexia [Recovered/Resolved]
  - Eye infection [Unknown]
  - Bone pain [Unknown]
  - Arthropathy [Unknown]
  - Skin exfoliation [Unknown]
  - Dry skin [Unknown]
  - Drug ineffective [Unknown]
  - Pain [Unknown]

NARRATIVE: CASE EVENT DATE: 20250101
